FAERS Safety Report 5512185-4 (Version None)
Quarter: 2007Q4

REPORT INFORMATION
  Report Type: 
  Country: None (occurrence: None)
  Receive Date: 20071112
  Receipt Date: 20071102
  Transmission Date: 20080405
  Serious: Yes (Other)
  Sender: FDA-Public Use
  Company Number: PHBS2007KR18421

PATIENT
  Age: 61 Year
  Sex: Male

DRUGS (1)
  1. NITRODERM [Suspect]

REACTIONS (3)
  - ARTERIOSPASM CORONARY [None]
  - CARDIAC ARREST [None]
  - STRESS ECHOCARDIOGRAM [None]
